FAERS Safety Report 19023117 (Version 1)
Quarter: 2021Q1

REPORT INFORMATION
  Report Type: Spontaneous
  Country: US (occurrence: US)
  Receive Date: 20210318
  Receipt Date: 20210318
  Transmission Date: 20210420
  Serious: Yes (Other)
  Sender: FDA-Public Use
  Company Number: US-TEVA-2021-US-1892027

PATIENT
  Sex: Male

DRUGS (5)
  1. SENOKOT [Suspect]
     Active Substance: SENNOSIDES
     Route: 065
  2. ALBUTEROL. [Suspect]
     Active Substance: ALBUTEROL
     Route: 065
  3. ALBUTEROL. [Suspect]
     Active Substance: ALBUTEROL
  4. ALBUTEROL. [Suspect]
     Active Substance: ALBUTEROL
  5. ALBUTEROL. [Suspect]
     Active Substance: ALBUTEROL

REACTIONS (2)
  - Wound haemorrhage [Unknown]
  - Pruritus [Unknown]
